FAERS Safety Report 19328494 (Version 1)
Quarter: 2021Q2

REPORT INFORMATION
  Report Type: Report from Study
  Country: US (occurrence: US)
  Receive Date: 20210528
  Receipt Date: 20210528
  Transmission Date: 20210717
  Serious: No
  Sender: FDA-Public Use
  Company Number: NVSC2021US113473

PATIENT
  Age: 18 Year
  Sex: Female

DRUGS (2)
  1. HIDROXIUREA [Concomitant]
     Active Substance: HYDROXYUREA
     Indication: PAIN
     Dosage: UNK
     Route: 065
  2. ADAKVEO [Suspect]
     Active Substance: CRIZANLIZUMAB-TMCA
     Indication: SICKLE CELL ANAEMIA WITH CRISIS
     Dosage: UNK UNK, QMO
     Route: 042

REACTIONS (1)
  - Drug ineffective [Not Recovered/Not Resolved]
